FAERS Safety Report 18302651 (Version 8)
Quarter: 2021Q4

REPORT INFORMATION
  Report Type: Other
  Country: DE (occurrence: DE)
  Receive Date: 20200923
  Receipt Date: 20211008
  Transmission Date: 20220303
  Serious: Yes (Hospitalization)
  Sender: FDA-Public Use
  Company Number: DE-ROCHE-2681448

PATIENT
  Age: 3 Day
  Sex: Female
  Weight: 9.46 kg

DRUGS (10)
  1. OCRELIZUMAB [Suspect]
     Active Substance: OCRELIZUMAB
     Indication: Product used for unknown indication
     Dosage: PATIENT^S MOTHER RECEIVED MOST RECENT DOSE (600 MG) OF OCRELIZUMAB ON 04/APR/2019
     Route: 064
     Dates: start: 20190404
  2. OCRELIZUMAB [Suspect]
     Active Substance: OCRELIZUMAB
     Dosage: SUBSEQUENT DOSE ON: 20/MAY/2021 (600 MG)
     Route: 063
     Dates: start: 20201120
  3. HUMAN ROTAVIRUS A [Concomitant]
     Active Substance: HUMAN ROTAVIRUS A
     Dates: start: 20200909
  4. HUMAN ROTAVIRUS A [Concomitant]
     Active Substance: HUMAN ROTAVIRUS A
     Dates: start: 20201009
  5. HAEMOPHILUS INFLUENZAE B VACCINE [Concomitant]
     Dates: start: 20201104
  6. HEPATITIS B VIRUS VACCINE [Concomitant]
     Active Substance: HEPATITIS B VIRUS VACCINE
     Dates: start: 20201104
  7. PNEUMOCOCCAL VACCINE POLYVALENT NOS [Concomitant]
     Active Substance: PNEUMOCOCCAL VACCINE POLYVALENT
     Dates: start: 20201104
  8. POLIOMYELITIS VACCINE [Concomitant]
     Active Substance: POLIOMYELITIS VACCINE
     Dates: start: 20201104
  9. MEASLES, MUMPS AND RUBELLA [Concomitant]
     Dates: start: 20210730
  10. VARICELLA-ZOSTER VIRUS STRAIN OKA/MERCK LIVE ANTIGEN [Concomitant]
     Active Substance: VARICELLA-ZOSTER VIRUS STRAIN OKA/MERCK LIVE ANTIGEN
     Dates: start: 20210730

REACTIONS (3)
  - Hyperbilirubinaemia neonatal [Recovered/Resolved]
  - Foetal exposure during pregnancy [Unknown]
  - Exposure via breast milk [Unknown]

NARRATIVE: CASE EVENT DATE: 20200731
